FAERS Safety Report 10696091 (Version 3)
Quarter: 2015Q1

REPORT INFORMATION
  Report Type: Spontaneous
  Country: CA (occurrence: CA)
  Receive Date: 20150107
  Receipt Date: 20150121
  Transmission Date: 20150721
  Serious: Yes (Other)
  Sender: FDA-Public Use
  Company Number: PHHY2015CA000599

PATIENT
  Age: 38 Year
  Sex: Female

DRUGS (10)
  1. CLOZAPINE. [Suspect]
     Active Substance: CLOZAPINE
     Indication: SCHIZOPHRENIA
  2. PROPRANOLOL [Concomitant]
     Active Substance: PROPRANOLOL\PROPRANOLOL HYDROCHLORIDE
     Indication: PRODUCT USED FOR UNKNOWN INDICATION
     Dosage: 20 MG, BID
     Route: 065
  3. HALOPERIDOL. [Suspect]
     Active Substance: HALOPERIDOL
     Indication: SCHIZOPHRENIA
     Dosage: 1 MG, QD
     Route: 065
  4. DIMENHYDRINATE. [Suspect]
     Active Substance: DIMENHYDRINATE
     Indication: EPIGASTRIC DISCOMFORT
     Dosage: 50 MG, UNK
     Route: 065
  5. CLONAZEPAM. [Suspect]
     Active Substance: CLONAZEPAM
     Indication: AKATHISIA
     Dosage: 3 MG, QD
     Route: 065
  6. CITALOPRAM [Suspect]
     Active Substance: CITALOPRAM HYDROBROMIDE
     Indication: SCHIZOPHRENIA
     Dosage: 40 MG, QD
     Route: 065
  7. DIMENHYDRINATE. [Suspect]
     Active Substance: DIMENHYDRINATE
     Indication: NAUSEA
  8. ZUCLOPENTHIXOL DECANOATE [Suspect]
     Active Substance: ZUCLOPENTHIXOL DECANOATE
     Indication: SCHIZOPHRENIA
     Dosage: 250 MG, EVERY 2 WEEKS
     Route: 030
  9. ZUCLOPENTHIXOL DECANOATE [Suspect]
     Active Substance: ZUCLOPENTHIXOL DECANOATE
     Dosage: 50 MG, EVERY 2 WEEKS
     Route: 030
  10. CLOZAPINE. [Suspect]
     Active Substance: CLOZAPINE
     Indication: PSYCHOTIC DISORDER
     Route: 065

REACTIONS (17)
  - Hallucinations, mixed [Recovering/Resolving]
  - Persecutory delusion [Recovering/Resolving]
  - Disorientation [Recovering/Resolving]
  - Gastrooesophageal reflux disease [Recovering/Resolving]
  - Psychotic disorder [Recovering/Resolving]
  - Delirium [Recovering/Resolving]
  - Drug withdrawal syndrome [Unknown]
  - Tachycardia [Not Recovered/Not Resolved]
  - Hypotension [Unknown]
  - Confusional state [Recovering/Resolving]
  - Sedation [Unknown]
  - Akathisia [Recovering/Resolving]
  - Therapeutic response decreased [Unknown]
  - Schizophrenia, disorganised type [Recovering/Resolving]
  - Drug dependence [Unknown]
  - Overdose [Unknown]
  - Irritability [Recovering/Resolving]
